FAERS Safety Report 20526335 (Version 2)
Quarter: 2022Q1

REPORT INFORMATION
  Report Type: Spontaneous
  Country: US (occurrence: US)
  Receive Date: 20220228
  Receipt Date: 20220328
  Transmission Date: 20220423
  Serious: Yes (Hospitalization, Other)
  Sender: FDA-Public Use
  Company Number: US-JAZZ-2022-US-005188

PATIENT
  Age: 29 Year
  Sex: Female

DRUGS (1)
  1. XYREM [Suspect]
     Active Substance: SODIUM OXYBATE
     Indication: Product used for unknown indication

REACTIONS (12)
  - Depressed level of consciousness [Recovered/Resolved]
  - Rhabdomyolysis [Recovered/Resolved]
  - Acidosis [Recovered/Resolved]
  - Aspartate aminotransferase increased [Recovered/Resolved]
  - Alanine aminotransferase increased [Recovered/Resolved]
  - Electrolyte imbalance [Recovered/Resolved]
  - Hyperglycaemia [Recovered/Resolved]
  - Blood creatinine increased [Recovered/Resolved]
  - Suicide attempt [Unknown]
  - Confusional state [Recovered/Resolved]
  - Vomiting [Recovered/Resolved]
  - Drug abuse [Unknown]
